FAERS Safety Report 16951662 (Version 2)
Quarter: 2019Q4

REPORT INFORMATION
  Report Type: Spontaneous
  Country: US (occurrence: US)
  Receive Date: 20191023
  Receipt Date: 20191029
  Transmission Date: 20200122
  Serious: Yes (Other)
  Sender: FDA-Public Use
  Company Number: US-PFIZER INC-2019454233

PATIENT
  Age: 13 Year
  Sex: Female

DRUGS (14)
  1. LEUCOVORINE [Suspect]
     Active Substance: LEUCOVORIN
     Indication: CHEMOTHERAPY
     Dosage: UNK,(RECEIVED TWO FURTHER COURSES)
  2. ACTINOMYCIN D [Suspect]
     Active Substance: DACTINOMYCIN
     Indication: CHEMOTHERAPY
  3. LEUCOVORINE [Suspect]
     Active Substance: LEUCOVORIN
     Indication: OSTEOSARCOMA
     Dosage: UNK, 2X/WEEK
  4. METHOTREXATE SODIUM. [Suspect]
     Active Substance: METHOTREXATE SODIUM
     Indication: OSTEOSARCOMA
     Dosage: UNK, 2X/WEEK (FOUR BIWEEKLY COURSES OF HDMTX (8 GM/M^2)) (HIGH DOSE)
     Route: 042
  5. CYCLOPHOSPHAMIDE. [Suspect]
     Active Substance: CYCLOPHOSPHAMIDE
     Indication: OSTEOSARCOMA
     Dosage: UNK (ONE COURSE)
  6. LEUCOVORINE [Suspect]
     Active Substance: LEUCOVORIN
     Dosage: 12 MG, 4X/DAY
  7. METHOTREXATE SODIUM. [Suspect]
     Active Substance: METHOTREXATE SODIUM
     Indication: CHEMOTHERAPY
     Dosage: UNK, (RECEIVED TWO FURTHER COURSES)
  8. VINCRISTINE SULFATE. [Suspect]
     Active Substance: VINCRISTINE SULFATE
     Indication: OSTEOSARCOMA
     Dosage: 1.5 MG/M2, 2X/WEEK
  9. BLEOMYCIN SULFATE [Suspect]
     Active Substance: BLEOMYCIN SULFATE
     Indication: CHEMOTHERAPY
  10. VINCRISTINE SULFATE. [Suspect]
     Active Substance: VINCRISTINE SULFATE
     Indication: CHEMOTHERAPY
  11. CYCLOPHOSPHAMIDE. [Suspect]
     Active Substance: CYCLOPHOSPHAMIDE
     Indication: CHEMOTHERAPY
  12. CHLORPROMAZINE. [Concomitant]
     Active Substance: CHLORPROMAZINE
     Indication: PROPHYLAXIS OF NAUSEA AND VOMITING
     Dosage: 25 MG, UNK (TWO DOSES) (4 HOURS APART)
     Route: 042
  13. BLEOMYCIN SULFATE [Suspect]
     Active Substance: BLEOMYCIN SULFATE
     Indication: OSTEOSARCOMA
     Dosage: UNK (ONE COURSE)
  14. ACTINOMYCIN D [Suspect]
     Active Substance: DACTINOMYCIN
     Indication: OSTEOSARCOMA
     Dosage: UNK (ONE COURSE)

REACTIONS (10)
  - Hemiparesis [Unknown]
  - Dizziness [Unknown]
  - Photophobia [Unknown]
  - Headache [Unknown]
  - Pyrexia [Unknown]
  - Dysarthria [Unknown]
  - Encephalopathy [Recovered/Resolved]
  - Cerebral disorder [Unknown]
  - Cerebrovascular accident [Unknown]
  - Agitation [Unknown]
